FAERS Safety Report 5851804-X (Version None)
Quarter: 2008Q3

REPORT INFORMATION
  Report Type: 
  Country: None (occurrence: None)
  Receive Date: 20080820
  Receipt Date: 20080812
  Transmission Date: 20090109
  Serious: Yes (Other)
  Sender: FDA-Public Use
  Company Number: US-GILEAD-2008-0017786

PATIENT
  Sex: Female

DRUGS (4)
  1. TRUVADA [Suspect]
     Indication: HIV INFECTION
     Dates: start: 20080307
  2. RALTEGRAVIR [Suspect]
     Indication: HIV INFECTION
     Dates: start: 20080307
  3. MARAVIROC [Suspect]
     Indication: HIV INFECTION
     Dates: start: 20080307
  4. INTELENCE [Suspect]
     Indication: HIV INFECTION
     Dates: start: 20080307, end: 20080410

REACTIONS (1)
  - STEVENS-JOHNSON SYNDROME [None]
